FAERS Safety Report 5886605-X (Version None)
Quarter: 2008Q3

REPORT INFORMATION
  Report Type: 
  Country: None (occurrence: None)
  Receive Date: 20080917
  Receipt Date: 20080903
  Transmission Date: 20090109
  Serious: Yes (Other)
  Sender: FDA-Public Use
  Company Number: PHHY2008GB20559

PATIENT

DRUGS (1)
  1. ZOMETA [Suspect]

REACTIONS (1)
  - SWOLLEN TONGUE [None]
